FAERS Safety Report 16430889 (Version 1)
Quarter: 2019Q2

REPORT INFORMATION
  Report Type: Report from Study
  Country: KR (occurrence: KR)
  Receive Date: 20190614
  Receipt Date: 20190614
  Transmission Date: 20190711
  Serious: Yes (Other)
  Sender: FDA-Public Use
  Company Number: KR-ROCHE-2333158

PATIENT

DRUGS (3)
  1. POZIOTINIB [Suspect]
     Active Substance: POZIOTINIB
     Indication: HER-2 POSITIVE GASTRIC CANCER
     Dosage: 8 MG OR 12 MG
     Route: 048
  2. TRASTUZUMAB. [Suspect]
     Active Substance: TRASTUZUMAB
     Indication: HER-2 POSITIVE GASTRIC CANCER
     Dosage: 8 MG/KG LOADING DOSE, THEN 6 MG/KG INFUSION
     Route: 041
  3. PACLITAXEL. [Suspect]
     Active Substance: PACLITAXEL
     Indication: HER-2 POSITIVE GASTRIC CANCER
     Route: 042

REACTIONS (9)
  - Diarrhoea [Unknown]
  - Pneumonia [Unknown]
  - Hypotension [Unknown]
  - Decreased appetite [Unknown]
  - Hypophagia [Unknown]
  - Anaemia [Unknown]
  - Febrile neutropenia [Unknown]
  - Hypokalaemia [Unknown]
  - Neutropenia [Unknown]
